FAERS Safety Report 20471544 (Version 1)
Quarter: 2022Q1

REPORT INFORMATION
  Report Type: Spontaneous
  Country: US (occurrence: US)
  Receive Date: 20220214
  Receipt Date: 20220214
  Transmission Date: 20220423
  Serious: No
  Sender: FDA-Public Use
  Company Number: US-SANOFI-00965350

PATIENT
  Sex: Female

DRUGS (1)
  1. SELSUN BLUE MEDICATED [Suspect]
     Active Substance: SELENIUM SULFIDE
     Indication: Seborrhoeic dermatitis

REACTIONS (3)
  - Acne [Unknown]
  - Rash [Unknown]
  - Skin disorder [Unknown]
